FAERS Safety Report 6151532-X (Version None)
Quarter: 2009Q2

REPORT INFORMATION
  Report Type: 
  Country: None (occurrence: None)
  Receive Date: 20090408
  Receipt Date: 20090331
  Transmission Date: 20091009
  Serious: Yes (Other)
  Sender: FDA-Public Use
  Company Number: 2009AL001449

PATIENT
  Age: 27 Year

DRUGS (5)
  1. DIAZEPAM TAB [Suspect]
  2. LITHIUM CARBONATE [Concomitant]
  3. PROCYCLIDINE HYDROCHLORIDE 2MG TAB [Concomitant]
  4. RISPERIDONE [Concomitant]
  5. ZUCLOPENTHIXOL [Concomitant]

REACTIONS (1)
  - CONVULSION [None]
